FAERS Safety Report 8067112-5 (Version None)
Quarter: 2012Q1

REPORT INFORMATION
  Report Type: 
  Country: None (occurrence: None)
  Receive Date: 20120124
  Receipt Date: 20120109
  Transmission Date: 20120608
  Serious: Yes (Other)
  Sender: FDA-Public Use
  Company Number: BR-WATSON-2012-00596

PATIENT
  Age: 50 Year
  Sex: Male

DRUGS (6)
  1. THALIDOMIDE [Suspect]
     Indication: TYPE 2 LEPRA REACTION
     Route: 065
  2. AZATHIOPRINE [Suspect]
     Indication: NEURITIS
     Dosage: 100 MG, DAILY
     Route: 065
  3. PREDNISONE TAB [Suspect]
     Indication: TYPE 2 LEPRA REACTION
     Dosage: TOTAL DOSE 6075 MG
     Route: 065
  4. AZATHIOPRINE [Suspect]
     Indication: TYPE 2 LEPRA REACTION
     Dosage: 2-3 MG/KG/D IN ASSOCIATION WITH GLUCOCORTICOSTEROIDS (GCS)
     Route: 065
  5. PREDNISONE TAB [Suspect]
     Indication: NEURITIS
  6. THALIDOMIDE [Suspect]
     Indication: NEURITIS

REACTIONS (1)
  - THROMBOCYTOPENIA [None]
